FAERS Safety Report 23512937 (Version 1)
Quarter: 2024Q1

REPORT INFORMATION
  Report Type: Spontaneous
  Country: US (occurrence: US)
  Receive Date: 20240212
  Receipt Date: 20240212
  Transmission Date: 20240410
  Serious: Yes (Other)
  Sender: FDA-Public Use
  Company Number: US-BRISTOL-MYERS SQUIBB COMPANY-2024-020802

PATIENT
  Age: 81 Year
  Sex: Female

DRUGS (1)
  1. ELIQUIS [Suspect]
     Active Substance: APIXABAN
     Indication: Product used for unknown indication
     Dosage: DOSE : 5 MG;     FREQ : TWO TIMES A DAY
     Route: 048

REACTIONS (16)
  - Carotid artery occlusion [Unknown]
  - Carotid artery stenosis [Unknown]
  - Peripheral vascular disorder [Unknown]
  - Hyperlipidaemia [Unknown]
  - Arteriosclerosis coronary artery [Unknown]
  - Intracranial aneurysm [Unknown]
  - Hypertension [Unknown]
  - Type 2 diabetes mellitus [Unknown]
  - Adrenal mass [Unknown]
  - Renal atrophy [Unknown]
  - Aortic aneurysm [Unknown]
  - Peripheral artery aneurysm [Unknown]
  - Aortic arteriosclerosis [Unknown]
  - Iliac artery arteriosclerosis [Unknown]
  - Renal artery stenosis [Unknown]
  - Carotid artery disease [Unknown]

NARRATIVE: CASE EVENT DATE: 20220701
